FAERS Safety Report 14193162 (Version 1)
Quarter: 2017Q4

REPORT INFORMATION
  Report Type: Spontaneous
  Country: US (occurrence: US)
  Receive Date: 20171115
  Receipt Date: 20171115
  Transmission Date: 20180321
  Serious: No
  Sender: FDA-Public Use
  Company Number: US-BAUSCH-BL-2016-027610

PATIENT
  Sex: Female
  Weight: 57.66 kg

DRUGS (1)
  1. XENAZINE [Suspect]
     Active Substance: TETRABENAZINE
     Indication: TIC
     Route: 048
     Dates: start: 201610

REACTIONS (3)
  - Off label use [Unknown]
  - Feeling abnormal [Recovered/Resolved]
  - Treatment noncompliance [Unknown]
